FAERS Safety Report 12724238 (Version 1)
Quarter: 2016Q3

REPORT INFORMATION
  Report Type: Spontaneous
  Country: US (occurrence: US)
  Receive Date: 20160907
  Receipt Date: 20160907
  Transmission Date: 20161109
  Serious: Yes (Other)
  Sender: FDA-Public Use
  Company Number: None

PATIENT
  Age: 27 Year
  Sex: Female
  Weight: 135 kg

DRUGS (1)
  1. KEFLEX [Suspect]
     Active Substance: CEPHALEXIN
     Indication: INFECTION
     Route: 048
     Dates: start: 20160821, end: 20160901

REACTIONS (3)
  - Abdominal discomfort [None]
  - Rash pruritic [None]
  - Skin burning sensation [None]

NARRATIVE: CASE EVENT DATE: 20160901
